FAERS Safety Report 17437163 (Version 3)
Quarter: 2020Q2

REPORT INFORMATION
  Report Type: Report from Study
  Country: US (occurrence: US)
  Receive Date: 20200219
  Receipt Date: 20200416
  Transmission Date: 20200713
  Serious: No
  Sender: FDA-Public Use
  Company Number: NVSC2020US046470

PATIENT
  Sex: Female

DRUGS (3)
  1. MAYZENT [Suspect]
     Active Substance: SIPONIMOD
     Indication: PRODUCT USED FOR UNKNOWN INDICATION
     Route: 065
  2. BOTOX [Concomitant]
     Active Substance: ONABOTULINUMTOXINA
     Indication: PRODUCT USED FOR UNKNOWN INDICATION
     Dosage: EVERY 3 MONTHS
     Route: 065
  3. MAYZENT [Suspect]
     Active Substance: SIPONIMOD
     Route: 065

REACTIONS (10)
  - Limb discomfort [Unknown]
  - Fall [Unknown]
  - Skeletal injury [Unknown]
  - Dry throat [Unknown]
  - Muscular weakness [Unknown]
  - Urinary tract infection [Unknown]
  - Muscle spasms [Unknown]
  - Asthenia [Unknown]
  - Memory impairment [Unknown]
  - Hypokinesia [Unknown]
